FAERS Safety Report 16069338 (Version 2)
Quarter: 2019Q2

REPORT INFORMATION
  Report Type: Spontaneous
  Country: US (occurrence: US)
  Receive Date: 20190313
  Receipt Date: 20190412
  Transmission Date: 20190711
  Serious: No
  Sender: FDA-Public Use
  Company Number: US-ASTRAZENECA-2019SE27410

PATIENT
  Sex: Female
  Weight: 70.8 kg

DRUGS (2)
  1. BYDUREON BCISE [Suspect]
     Active Substance: EXENATIDE
     Indication: ADJUVANT THERAPY
     Route: 058
     Dates: start: 2019
  2. VICTOZA [Concomitant]
     Active Substance: LIRAGLUTIDE

REACTIONS (5)
  - Dysphonia [Unknown]
  - Circumstance or information capable of leading to medication error [Unknown]
  - Blood glucose abnormal [Unknown]
  - Malaise [Unknown]
  - Device malfunction [Unknown]
